FAERS Safety Report 6271166-6 (Version None)
Quarter: 2009Q3

REPORT INFORMATION
  Report Type: 
  Country: None (occurrence: None)
  Receive Date: 20090717
  Receipt Date: 20090709
  Transmission Date: 20100115
  Serious: Yes (Hospitalization)
  Sender: FDA-Public Use
  Company Number: US-BIOGENIDEC-2009BI015804

PATIENT
  Age: 59 Year
  Sex: Male

DRUGS (1)
  1. TYSABRI [Suspect]
     Indication: MULTIPLE SCLEROSIS
     Route: 042
     Dates: start: 20080515

REACTIONS (4)
  - MOBILITY DECREASED [None]
  - MULTIPLE SCLEROSIS RELAPSE [None]
  - SCIATICA [None]
  - SPINAL COLUMN STENOSIS [None]
